FAERS Safety Report 8401360-7 (Version None)
Quarter: 2012Q2

REPORT INFORMATION
  Report Type: 
  Country: None (occurrence: None)
  Receive Date: 20120525
  Receipt Date: 20120514
  Transmission Date: 20120825
  Serious: Yes (Death, Hospitalization, Other)
  Sender: FDA-Public Use
  Company Number: ADR-2012-00942

PATIENT
  Age: 64 Year
  Sex: Female

DRUGS (1)
  1. BACLOFEN [Suspect]
     Indication: TETANUS

REACTIONS (7)
  - UNRESPONSIVE TO STIMULI [None]
  - PUPILLARY REFLEX IMPAIRED [None]
  - MULTI-ORGAN FAILURE [None]
  - INCORRECT DOSE ADMINISTERED [None]
  - AUTONOMIC NERVOUS SYSTEM IMBALANCE [None]
  - MUSCLE SPASMS [None]
  - TOXICITY TO VARIOUS AGENTS [None]
